FAERS Safety Report 15308307 (Version 2)
Quarter: 2018Q4

REPORT INFORMATION
  Report Type: Report from Study
  Country: IT (occurrence: IT)
  Receive Date: 20180822
  Receipt Date: 20181005
  Transmission Date: 20190204
  Serious: Yes (Other)
  Sender: FDA-Public Use
  Company Number: IT-TEVA-2018-IT-944856

PATIENT
  Age: 29 Year
  Sex: Female

DRUGS (1)
  1. LESTRONETTE 0,10 MG + 0,02 MG COMPRESSE RIVESTITE CON FILM [Suspect]
     Active Substance: ETHINYL ESTRADIOL\LEVONORGESTREL
     Indication: CONTRACEPTION
     Route: 048
     Dates: start: 20180702

REACTIONS (2)
  - Pelvic pain [Recovering/Resolving]
  - Metrorrhagia [Recovering/Resolving]

NARRATIVE: CASE EVENT DATE: 20180715
